FAERS Safety Report 4675327-9 (Version None)
Quarter: 2005Q2

REPORT INFORMATION
  Report Type: 
  Country: None (occurrence: None)
  Receive Date: 20050527
  Receipt Date: 20050516
  Transmission Date: 20051028
  Serious: Yes (Other)
  Sender: FDA-Public Use
  Company Number: AT-KINGPHARMUSA00001-K200500654

PATIENT
  Age: 37 Year
  Sex: Female

DRUGS (1)
  1. EPIPEN [Suspect]
     Indication: ARTHROPOD STING
     Dosage: UNK, SINGLE

REACTIONS (4)
  - ACCIDENTAL EXPOSURE [None]
  - INJECTION SITE PAIN [None]
  - SKELETAL INJURY [None]
  - WOUND [None]
